FAERS Safety Report 18066232 (Version 1)
Quarter: 2020Q3

REPORT INFORMATION
  Report Type: Spontaneous
  Country: JP (occurrence: JP)
  Receive Date: 20200724
  Receipt Date: 20200724
  Transmission Date: 20201103
  Serious: Yes (Other)
  Sender: FDA-Public Use
  Company Number: JP-BAYER-2020-141557

PATIENT
  Sex: Female

DRUGS (1)
  1. YAZ [Suspect]
     Active Substance: DROSPIRENONE\ETHINYL ESTRADIOL
     Indication: AMENORRHOEA
     Dosage: UNK
     Route: 048
     Dates: start: 2020

REACTIONS (7)
  - Renal impairment [None]
  - Throat irritation [None]
  - Abnormal loss of weight [None]
  - Off label use [None]
  - Decreased appetite [None]
  - Abdominal discomfort [None]
  - Product use in unapproved indication [None]
